FAERS Safety Report 4268702-8 (Version None)
Quarter: 2004Q1

REPORT INFORMATION
  Report Type: 
  Country: None (occurrence: None)
  Receive Date: 20040109
  Receipt Date: 20031222
  Transmission Date: 20041129
  Serious: Yes (Hospitalization)
  Sender: FDA-Public Use
  Company Number: EWC031237490

PATIENT
  Age: 28 Year
  Sex: Female
  Weight: 68 kg

DRUGS (5)
  1. HUMULIN U [Suspect]
     Indication: GESTATIONAL DIABETES
     Dosage: 56 IU/DAY
     Dates: start: 20031202, end: 20031206
  2. HUMULIN R [Suspect]
     Indication: GESTATIONAL DIABETES
     Dosage: 75 IU/DAY
     Dates: start: 20031202, end: 20031208
  3. HUMALOG [Suspect]
     Indication: GESTATIONAL DIABETES
     Dates: start: 20031210, end: 20031213
  4. ACTRAPID (INSULIN) [Concomitant]
  5. ULTRATARD (INSULIN HUMAN ZINC SUSPENSION) [Concomitant]

REACTIONS (3)
  - ANAPHYLACTIC REACTION [None]
  - COMPLICATIONS OF MATERNAL EXPOSURE TO THERAPEUTIC DRUGS [None]
  - DERMATITIS ALLERGIC [None]
